FAERS Safety Report 5608871-8 (Version None)
Quarter: 2008Q1

REPORT INFORMATION
  Report Type: 
  Country: None (occurrence: None)
  Receive Date: 20080131
  Receipt Date: 20080121
  Transmission Date: 20080703
  Serious: Yes (Other)
  Sender: FDA-Public Use
  Company Number: GB-NOVOPROD-271288

PATIENT
  Age: 54 Year
  Sex: Female

DRUGS (4)
  1. HUMAN MIXTARD 30 HM(GE) [Suspect]
     Indication: INSULIN-REQUIRING TYPE 2 DIABETES MELLITUS
     Dosage: 32 IU, QD
     Route: 058
  2. CLOBAZAM [Suspect]
     Dosage: 10 MG, UNK
  3. SIMVASTATIN [Suspect]
     Dosage: 20 MG, QD
     Route: 048
     Dates: start: 20061201
  4. VALPROATE SODIUM [Suspect]
     Dosage: 200 MG, QD

REACTIONS (3)
  - CONDITION AGGRAVATED [None]
  - CONVULSION [None]
  - DRUG INTERACTION [None]
